FAERS Safety Report 16612124 (Version 1)
Quarter: 2019Q3

REPORT INFORMATION
  Report Type: Spontaneous
  Country: CN (occurrence: CN)
  Receive Date: 20190722
  Receipt Date: 20190722
  Transmission Date: 20191004
  Serious: Yes (Other)
  Sender: FDA-Public Use
  Company Number: CN-B.I. PHARMACEUTICALS,INC./RIDGEFIELD-2019-BI-030161

PATIENT
  Age: 72 Year
  Sex: Female
  Weight: 65 kg

DRUGS (3)
  1. SODIUM CHLORIDE. [Concomitant]
     Active Substance: SODIUM CHLORIDE
     Indication: DRUG THERAPY
     Route: 055
     Dates: start: 20190706, end: 20190708
  2. ATROVENT [Suspect]
     Active Substance: IPRATROPIUM BROMIDE
     Indication: PNEUMONIA
     Route: 055
     Dates: start: 20190706, end: 20190708
  3. BUDESONIDE. [Suspect]
     Active Substance: BUDESONIDE
     Indication: PNEUMONIA
     Dosage: SUSPENSION FOR INHALATION
     Route: 055
     Dates: start: 20190706, end: 20190708

REACTIONS (5)
  - Pain [Recovering/Resolving]
  - Erythema [Recovering/Resolving]
  - Swelling [Recovering/Resolving]
  - Rash [Recovering/Resolving]
  - Pruritus [Recovering/Resolving]

NARRATIVE: CASE EVENT DATE: 20190708
